FAERS Safety Report 5540917-8 (Version None)
Quarter: 2007Q4

REPORT INFORMATION
  Report Type: 
  Country: None (occurrence: None)
  Receive Date: 20071209
  Receipt Date: 20070417
  Transmission Date: 20080405
  Serious: No
  Sender: FDA-Public Use
  Company Number: US-AMGEN-KDL203382

PATIENT
  Sex: Female

DRUGS (2)
  1. ENBREL [Suspect]
     Indication: RHEUMATOID ARTHRITIS
     Route: 058
     Dates: start: 20060322
  2. ENBREL [Suspect]
     Indication: DRUG USE FOR UNKNOWN INDICATION

REACTIONS (7)
  - INJECTION SITE REACTION [None]
  - MOUTH ULCERATION [None]
  - ORAL INFECTION [None]
  - RHINITIS [None]
  - SINUSITIS [None]
  - STOMATITIS [None]
  - VIRAL INFECTION [None]
